FAERS Safety Report 6680166-3 (Version None)
Quarter: 2010Q2

REPORT INFORMATION
  Report Type: 
  Country: None (occurrence: None)
  Receive Date: 20100413
  Receipt Date: 20100331
  Transmission Date: 20101027
  Serious: Yes (Hospitalization)
  Sender: FDA-Public Use
  Company Number: UA-ELI_LILLY_AND_COMPANY-UA201003004785

PATIENT
  Age: 54 Year
  Sex: Female

DRUGS (2)
  1. ZYPREXA [Suspect]
     Indication: PARANOIA
     Dosage: 15 MG, DAILY (1/D)
     Route: 048
     Dates: start: 20100302, end: 20100312
  2. AMINAZINUM [Concomitant]
     Dates: start: 19850101

REACTIONS (6)
  - ABDOMINAL PAIN UPPER [None]
  - BODY TEMPERATURE INCREASED [None]
  - FAECES DISCOLOURED [None]
  - OCULAR ICTERUS [None]
  - PRURITUS [None]
  - YELLOW SKIN [None]
